FAERS Safety Report 13430986 (Version 2)
Quarter: 2017Q2

REPORT INFORMATION
  Report Type: Spontaneous
  Country: JP (occurrence: JP)
  Receive Date: 20170412
  Receipt Date: 20170427
  Transmission Date: 20170830
  Serious: Yes (Other)
  Sender: FDA-Public Use
  Company Number: JP-PFIZER INC-2017154576

PATIENT
  Age: 77 Year
  Sex: Male

DRUGS (1)
  1. LYRICA [Suspect]
     Active Substance: PREGABALIN
     Dosage: UNK

REACTIONS (8)
  - Nephrotic syndrome [Unknown]
  - Neck pain [Unknown]
  - Condition aggravated [Unknown]
  - Glomerulonephritis membranous [Unknown]
  - Renal cyst [Unknown]
  - Back pain [Unknown]
  - Hypoaesthesia [Unknown]
  - Therapeutic response decreased [Unknown]

NARRATIVE: CASE EVENT DATE: 201606
